FAERS Safety Report 16737031 (Version 2)
Quarter: 2019Q3

REPORT INFORMATION
  Report Type: Spontaneous
  Country: PT (occurrence: PT)
  Receive Date: 20190823
  Receipt Date: 20190911
  Transmission Date: 20191005
  Serious: Yes (Death)
  Sender: FDA-Public Use
  Company Number: PT-MYLANLABS-2019M1079441

PATIENT
  Age: 66 Year
  Sex: Female

DRUGS (5)
  1. FOLIC ACID. [Suspect]
     Active Substance: FOLIC ACID
     Dosage: UNK
     Route: 065
  2. FOLIC ACID. [Suspect]
     Active Substance: FOLIC ACID
     Indication: PRODUCT USED FOR UNKNOWN INDICATION
     Dosage: 5 MILLIGRAM, QD (5 MG, 1X / DAY)
     Route: 065
  3. LORAZEP [Suspect]
     Active Substance: LORAZEPAM
     Indication: PRODUCT USED FOR UNKNOWN INDICATION
     Dosage: 1.5 MILLIGRAM, QD
     Route: 065
  4. LANSOPRAZOLE. [Suspect]
     Active Substance: LANSOPRAZOLE
     Indication: PRODUCT USED FOR UNKNOWN INDICATION
     Dosage: 20 MILLIGRAM, QD
     Route: 065
  5. FUROSEMIDE. [Suspect]
     Active Substance: FUROSEMIDE
     Indication: PRODUCT USED FOR UNKNOWN INDICATION
     Dosage: 40 MILLIGRAM, QD
     Route: 065

REACTIONS (24)
  - Abnormal loss of weight [Fatal]
  - Systolic dysfunction [Fatal]
  - Hypogammaglobulinaemia [Fatal]
  - Cardiogenic shock [Fatal]
  - Plasma cell myeloma [Fatal]
  - Cardiac amyloidosis [Fatal]
  - Pallor [Fatal]
  - Pericardial effusion [Fatal]
  - Myocardial necrosis [Fatal]
  - Asthenia [Fatal]
  - Normochromic normocytic anaemia [Fatal]
  - Conjunctival haemorrhage [Fatal]
  - Fatigue [Fatal]
  - Dyspnoea at rest [Fatal]
  - Coagulopathy [Fatal]
  - Palpitations [Fatal]
  - Gingival bleeding [Fatal]
  - Jugular vein distension [Fatal]
  - Oedema peripheral [Fatal]
  - Ischaemia [Fatal]
  - Cardiac failure [Fatal]
  - Pleural effusion [Fatal]
  - Crepitations [Fatal]
  - Atrial fibrillation [Fatal]
